FAERS Safety Report 4368316-5 (Version None)
Quarter: 2004Q2

REPORT INFORMATION
  Report Type: 
  Country: None (occurrence: None)
  Receive Date: 20040527
  Receipt Date: 20040519
  Transmission Date: 20050107
  Serious: Yes (Hospitalization)
  Sender: FDA-Public Use
  Company Number: HQWYE006719MAY04

PATIENT
  Age: 86 Year
  Sex: Male

DRUGS (3)
  1. EUPANTOL (PANTOPRAZOLE, TABLET, DELAYED RELEASE) [Suspect]
     Dosage: 1 DOSE 1X PER 1 DAY
     Route: 048
  2. LASIX [Concomitant]
  3. GARDENAL (PHENOBARBITAL) [Concomitant]

REACTIONS (3)
  - BLOOD POTASSIUM INCREASED [None]
  - BLOOD UREA INCREASED [None]
  - HYPONATRAEMIA [None]
